FAERS Safety Report 8049777-7 (Version None)
Quarter: 2012Q1

REPORT INFORMATION
  Report Type: 
  Country: None (occurrence: None)
  Receive Date: 20120117
  Receipt Date: 20120110
  Transmission Date: 20120608
  Serious: Yes (Other)
  Sender: FDA-Public Use
  Company Number: FR-TEVA-316950ISR

PATIENT
  Sex: Female
  Weight: 40 kg

DRUGS (7)
  1. ACETAMINOPHEN [Concomitant]
     Indication: PAIN
     Dosage: VARIABLE
     Route: 048
     Dates: start: 20060101
  2. DURAGESIC-100 [Concomitant]
     Indication: PAIN
     Dosage: ONE PATCH EVERY THREE DAYS
     Route: 062
     Dates: start: 20060101
  3. TEGRETOL [Concomitant]
     Indication: PAIN
     Dosage: 200 MILLIGRAM;
     Route: 048
     Dates: start: 20060101
  4. TRAMADOL HCL [Concomitant]
     Indication: PAIN
     Dosage: VARIABLE
     Route: 048
     Dates: start: 20060101
  5. ACTIQ [Suspect]
     Indication: PAIN
     Dosage: 2400 TO 3600 MICROGRAM
     Route: 048
     Dates: start: 20080101
  6. CLONAZEPAM [Concomitant]
     Indication: PAIN
     Dosage: 20 ; DROPS
     Route: 048
     Dates: start: 20060101
  7. TOPIRAMATE [Concomitant]
     Indication: PAIN
     Dosage: 200 MILLIGRAM;
     Route: 048
     Dates: start: 20080101

REACTIONS (3)
  - RESPIRATORY FAILURE [None]
  - OVERDOSE [None]
  - OFF LABEL USE [None]
